FAERS Safety Report 20645309 (Version 1)
Quarter: 2022Q1

REPORT INFORMATION
  Report Type: Spontaneous
  Country: US (occurrence: None)
  Receive Date: 20220328
  Receipt Date: 20220328
  Transmission Date: 20220423
  Serious: No
  Sender: FDA-Public Use
  Company Number: None

PATIENT
  Age: 11 Year
  Sex: Male
  Weight: 49.5 kg

DRUGS (3)
  1. ADVAIR HFA [Suspect]
     Active Substance: FLUTICASONE PROPIONATE\SALMETEROL XINAFOATE
     Indication: Asthma
     Dosage: OTHER QUANTITY : 2 SPRAY(S);?FREQUENCY : TWICE A DAY;?
     Route: 055
     Dates: start: 20210927
  2. Cingular and Philips Respironics Optichamber(?) spacer. [Concomitant]
  3. LORATADINE [Concomitant]
     Active Substance: LORATADINE

REACTIONS (5)
  - Device malfunction [None]
  - Condition aggravated [None]
  - Treatment noncompliance [None]
  - Product dose omission issue [None]
  - Incorrect dose administered by device [None]

NARRATIVE: CASE EVENT DATE: 20220327
